FAERS Safety Report 15585150 (Version 1)
Quarter: 2018Q4

REPORT INFORMATION
  Report Type: Spontaneous
  Country: US (occurrence: US)
  Receive Date: 20181105
  Receipt Date: 20181105
  Transmission Date: 20190205
  Serious: Yes (Life-Threatening, Other)
  Sender: FDA-Public Use
  Company Number: US-ACCORD-090643

PATIENT
  Sex: Female

DRUGS (5)
  1. CARBOPLATIN. [Suspect]
     Active Substance: CARBOPLATIN
     Indication: METASTASES TO LUNG
     Dosage: DAYS -4 TO -2
  2. CLOBAZAM. [Concomitant]
     Active Substance: CLOBAZAM
     Indication: AICARDI^S SYNDROME
  3. VIGABATRIN. [Concomitant]
     Active Substance: VIGABATRIN
     Indication: AICARDI^S SYNDROME
  4. CANNABIDIOL [Concomitant]
     Active Substance: CANNABIDIOL
     Indication: AICARDI^S SYNDROME
  5. ETOPOSIDE. [Suspect]
     Active Substance: ETOPOSIDE
     Indication: CONGENITAL TERATOMA
     Dosage: DAYS -4 TO -2

REACTIONS (7)
  - Pyrexia [Recovered/Resolved]
  - Neutropenia [Recovered/Resolved]
  - Mucosal inflammation [Recovered/Resolved]
  - Off label use [Unknown]
  - Deafness [Not Recovered/Not Resolved]
  - Anaemia [Recovered/Resolved]
  - Thrombocytopenia [Recovered/Resolved]
